FAERS Safety Report 11189914 (Version 1)
Quarter: 2015Q2

REPORT INFORMATION
  Report Type: Spontaneous
  Country: US (occurrence: None)
  Receive Date: 20150612
  Receipt Date: 20150612
  Transmission Date: 20150821
  Serious: Yes (Life-Threatening, Hospitalization, Disabling)
  Sender: FDA-Public Use
  Company Number: None

PATIENT
  Age: 69 Year
  Sex: Female
  Weight: 68.04 kg

DRUGS (16)
  1. DESLORATADINE. [Concomitant]
     Active Substance: DESLORATADINE
  2. IBANDRONATE SODIUM. [Concomitant]
     Active Substance: IBANDRONATE SODIUM
  3. PRAVASTATIN SODIUM. [Concomitant]
     Active Substance: PRAVASTATIN SODIUM
  4. IPRATROPIUM [Concomitant]
     Active Substance: IPRATROPIUM
  5. FLUTICASONE PROPIONATE. [Concomitant]
     Active Substance: FLUTICASONE PROPIONATE
  6. SERTRALINE HYDROXIDE [Concomitant]
  7. EXCEDRIN [Concomitant]
     Active Substance: ACETAMINOPHEN\ASPIRIN\CAFFEINE
  8. BUSIRONE [Concomitant]
  9. LEVOTHYROXINE SODIUM. [Concomitant]
     Active Substance: LEVOTHYROXINE SODIUM
  10. TURDOZA PRESSAIR [Concomitant]
  11. THEO-24 [Concomitant]
     Active Substance: THEOPHYLLINE ANHYDROUS
  12. VERAPAMIL HYDROCHLORIDE. [Concomitant]
     Active Substance: VERAPAMIL HYDROCHLORIDE
  13. ACCUPRIL [Suspect]
     Active Substance: QUINAPRIL HYDROCHLORIDE
     Indication: HYPERTENSION
     Route: 048
     Dates: start: 20051104, end: 20150508
  14. RANITIDINE HYDROCLORIDE [Concomitant]
  15. FUROSEMIDE. [Concomitant]
     Active Substance: FUROSEMIDE
  16. BREO ELLIPTA [Concomitant]
     Active Substance: FLUTICASONE FUROATE\VILANTEROL TRIFENATATE

REACTIONS (3)
  - Swollen tongue [None]
  - Acute respiratory failure [None]
  - Pharyngeal oedema [None]

NARRATIVE: CASE EVENT DATE: 20150508
